FAERS Safety Report 9058524 (Version 3)
Quarter: 2013Q4

REPORT INFORMATION
  Report Type: Spontaneous
  Country: US (occurrence: US)
  Receive Date: 20130211
  Receipt Date: 20131126
  Transmission Date: 20140711
  Serious: Yes (Death, Hospitalization)
  Sender: FDA-Public Use
  Company Number: US-JNJFOC-20130202764

PATIENT
  Sex: Male
  Weight: 72.58 kg

DRUGS (9)
  1. XARELTO [Suspect]
     Indication: ANTICOAGULANT THERAPY
     Route: 048
     Dates: start: 20121022, end: 20130109
  2. ALLOPURINOL [Concomitant]
     Indication: GOUT
     Route: 048
     Dates: end: 20130107
  3. ATENOLOL [Concomitant]
     Indication: HYPERTENSION
     Dates: end: 20130107
  4. AMLODIPINE [Concomitant]
     Indication: PRODUCT USED FOR UNKNOWN INDICATION
     Route: 048
     Dates: end: 20130107
  5. FUROSEMIDE [Concomitant]
     Indication: DIURETIC THERAPY
     Route: 048
     Dates: end: 20130107
  6. METFORMIN HCL [Concomitant]
     Indication: DIABETES MELLITUS
     Route: 048
     Dates: end: 20130107
  7. POTASSIUM CHLORIDE [Concomitant]
     Indication: PRODUCT USED FOR UNKNOWN INDICATION
     Route: 048
     Dates: end: 20130107
  8. LISINOPRIL [Concomitant]
     Indication: HYPERTENSION
     Route: 048
     Dates: end: 20130107
  9. VITAMINE  E [Concomitant]
     Dosage: 400 UNITS PER DAY
     Route: 065

REACTIONS (1)
  - Renal failure acute [Fatal]
